FAERS Safety Report 7325129-X (Version None)
Quarter: 2011Q1

REPORT INFORMATION
  Report Type: 
  Country: None (occurrence: None)
  Receive Date: 20110302
  Receipt Date: 20110222
  Transmission Date: 20110831
  Serious: No
  Sender: FDA-Public Use
  Company Number: US-BIOGENIDEC-2011BI007221

PATIENT
  Sex: Female

DRUGS (3)
  1. AVONEX [Suspect]
     Indication: MULTIPLE SCLEROSIS
     Route: 030
     Dates: start: 20110104
  2. AVONEX [Suspect]
     Route: 030
     Dates: start: 20041109, end: 20080215
  3. AVONEX [Suspect]
     Route: 030
     Dates: start: 20040301

REACTIONS (2)
  - ASTHENIA [None]
  - GENERAL SYMPTOM [None]
